FAERS Safety Report 7056165-9 (Version None)
Quarter: 2010Q4

REPORT INFORMATION
  Report Type: 
  Country: None (occurrence: None)
  Receive Date: 20101018
  Receipt Date: 20100426
  Transmission Date: 20110411
  Serious: No
  Sender: FDA-Public Use
  Company Number: 2010-00867

PATIENT
  Age: 57 Year
  Sex: Female
  Weight: 70.3075 kg

DRUGS (2)
  1. ZICAM COLD REMEDY PLUS LIQUI-LOZ [Suspect]
     Indication: NASOPHARYNGITIS
     Dosage: ONE DOSE
     Dates: start: 20100424, end: 20100424
  2. PRILOSEC [Concomitant]

REACTIONS (2)
  - AGEUSIA [None]
  - DRUG INEFFECTIVE [None]
